FAERS Safety Report 10770348 (Version 2)
Quarter: 2015Q1

REPORT INFORMATION
  Report Type: Report from Study
  Country: US (occurrence: US)
  Receive Date: 20150206
  Receipt Date: 20150306
  Transmission Date: 20150721
  Serious: Yes (Life-Threatening, Hospitalization, Other)
  Sender: FDA-Public Use
  Company Number: US-ASTRAZENECA-2015SE11766

PATIENT
  Age: 47 Year
  Sex: Female
  Weight: 86.4 kg

DRUGS (19)
  1. LOMOTIL [Concomitant]
     Active Substance: ATROPINE SULFATE\DIPHENOXYLATE HYDROCHLORIDE
     Dates: start: 20141223
  2. NASONEX [Concomitant]
     Active Substance: MOMETASONE FUROATE
     Dates: start: 2001
  3. ABILIFY [Concomitant]
     Active Substance: ARIPIPRAZOLE
     Dates: start: 2001
  4. RITALIN [Concomitant]
     Active Substance: METHYLPHENIDATE HYDROCHLORIDE
     Dates: start: 2007
  5. OXCARBAZEPINE. [Concomitant]
     Active Substance: OXCARBAZEPINE
     Dates: start: 2001
  6. HYDROCODONE/ACETAMINOPHEN [Concomitant]
     Active Substance: ACETAMINOPHEN\HYDROCODONE
  7. DESVENLAFAXINE. [Concomitant]
     Active Substance: DESVENLAFAXINE
     Dates: start: 2001
  8. BLINDED UNSPECIFIED DRUG [Suspect]
     Active Substance: UNSPECIFIED INGREDIENT
     Indication: BREAST CANCER FEMALE
     Route: 048
     Dates: start: 20141215, end: 20150129
  9. PSEUDOEPHEDRINE [Concomitant]
     Active Substance: PSEUDOEPHEDRINE
     Dates: start: 20150116
  10. CALCIUM CARBONATE. [Concomitant]
     Active Substance: CALCIUM CARBONATE
     Dates: start: 20141215
  11. XGEVA [Concomitant]
     Active Substance: DENOSUMAB
     Dates: start: 20141215, end: 20150123
  12. SEROQUEL [Concomitant]
     Active Substance: QUETIAPINE FUMARATE
     Dates: start: 2001
  13. FULVESTRANT [Suspect]
     Active Substance: FULVESTRANT
     Indication: BREAST CANCER FEMALE
     Dosage: 500 MG
     Route: 030
     Dates: start: 20141215, end: 20150129
  14. HYOSCINE [Concomitant]
     Active Substance: SCOPOLAMINE
     Dates: start: 20141229
  15. TENORMIN [Concomitant]
     Active Substance: ATENOLOL
     Dates: start: 2001
  16. ADVIL [Concomitant]
     Active Substance: IBUPROFEN
     Dates: start: 2001
  17. CODEIN [Concomitant]
     Active Substance: CODEINE
     Dates: start: 20150116
  18. PHENERGAN [Concomitant]
     Active Substance: PROMETHAZINE HYDROCHLORIDE
     Dates: start: 20141229
  19. IMODIUM [Concomitant]
     Active Substance: LOPERAMIDE HYDROCHLORIDE
     Dates: start: 20141215

REACTIONS (1)
  - Septic shock [Recovered/Resolved]

NARRATIVE: CASE EVENT DATE: 20150129
